FAERS Safety Report 5239098-X (Version None)
Quarter: 2007Q1

REPORT INFORMATION
  Report Type: 
  Country: None (occurrence: None)
  Receive Date: 20070209
  Receipt Date: 20070126
  Transmission Date: 20070707
  Serious: Yes (Death, Other)
  Sender: FDA-Public Use
  Company Number: 2007JP000371

PATIENT
  Age: 15 Year
  Sex: Male
  Weight: 33 kg

DRUGS (5)
  1. PROGRAF [Suspect]
     Indication: BONE MARROW TRANSPLANT
  2. METHOTREXATE (METHOTREXATE SODIUM) [Concomitant]
  3. ACYCLOVIR [Concomitant]
  4. CYCLOSPORINE [Concomitant]
  5. PREDNISOLONE [Concomitant]

REACTIONS (20)
  - BLISTER [None]
  - CHOLECYSTITIS ACUTE [None]
  - DISSEMINATED INTRAVASCULAR COAGULATION [None]
  - DRUG INEFFECTIVE [None]
  - DYSKINESIA [None]
  - FALL [None]
  - FUNGAEMIA [None]
  - GASTRIC MUCOSAL LESION [None]
  - GRAND MAL CONVULSION [None]
  - HAEMORRHAGE INTRACRANIAL [None]
  - HEPATIC NECROSIS [None]
  - HERPES ZOSTER [None]
  - MULTI-ORGAN FAILURE [None]
  - PAIN [None]
  - PANCREATITIS [None]
  - PULMONARY HAEMORRHAGE [None]
  - RENAL FAILURE [None]
  - RENAL HYPERTENSION [None]
  - RESTLESSNESS [None]
  - SEPSIS [None]
